FAERS Safety Report 23751591 (Version 1)
Quarter: 2024Q2

REPORT INFORMATION
  Report Type: Report from Study
  Country: US (occurrence: US)
  Receive Date: 20240417
  Receipt Date: 20240417
  Transmission Date: 20240716
  Serious: Yes (Hospitalization)
  Sender: FDA-Public Use
  Company Number: US-MYLANLABS-2024M1033921

PATIENT
  Age: 68 Year
  Sex: Male

DRUGS (6)
  1. MINOCYCLINE [Suspect]
     Active Substance: MINOCYCLINE HYDROCHLORIDE
     Indication: Pneumonia
     Dosage: 200 MILLIGRAM, BID (RECEIVED OVER 1 HOUR)
     Route: 065
  2. MINOCYCLINE [Suspect]
     Active Substance: MINOCYCLINE HYDROCHLORIDE
     Indication: Acinetobacter infection
  3. AMPICILLIN SODIUM\SULBACTAM SODIUM [Suspect]
     Active Substance: AMPICILLIN SODIUM\SULBACTAM SODIUM
     Indication: Pneumonia
     Dosage: 9 GRAM, Q8H (RECEIVED PROLONGED INFUSION OVER 4 HOURS)
     Route: 065
  4. AMPICILLIN SODIUM\SULBACTAM SODIUM [Suspect]
     Active Substance: AMPICILLIN SODIUM\SULBACTAM SODIUM
     Indication: Acinetobacter infection
  5. POLYMYXIN B [Suspect]
     Active Substance: POLYMYXIN B
     Indication: Pneumonia
     Dosage: 25000 INTERNATIONAL UNIT/KILOGRAM (RECEIVED AS LOADING DOSE)
     Route: 065
  6. POLYMYXIN B [Suspect]
     Active Substance: POLYMYXIN B
     Indication: Acinetobacter infection
     Dosage: 15000 INTERNATIONAL UNIT/KILOGRAM (RECEIVED OVER A 2 HOURS)
     Route: 065

REACTIONS (1)
  - Drug ineffective [Unknown]
